FAERS Safety Report 16937563 (Version 2)
Quarter: 2019Q4

REPORT INFORMATION
  Report Type: Spontaneous
  Country: NZ (occurrence: NZ)
  Receive Date: 20191019
  Receipt Date: 20191108
  Transmission Date: 20200122
  Serious: Yes (Death, Other)
  Sender: FDA-Public Use
  Company Number: NZ-ABBVIE-19K-118-2969962-00

PATIENT
  Age: 44 Year
  Sex: Male

DRUGS (1)
  1. MAVIRET [Suspect]
     Active Substance: GLECAPREVIR\PIBRENTASVIR
     Indication: HEPATITIS C
     Route: 048
     Dates: start: 20190507

REACTIONS (5)
  - Viral infection [Unknown]
  - Stress [Fatal]
  - Gait disturbance [Unknown]
  - Completed suicide [Fatal]
  - Hypoaesthesia [Unknown]

NARRATIVE: CASE EVENT DATE: 2019
